FAERS Safety Report 6551688-0 (Version None)
Quarter: 2010Q1

REPORT INFORMATION
  Report Type: 
  Country: None (occurrence: None)
  Receive Date: 20100126
  Receipt Date: 20100121
  Transmission Date: 20100710
  Serious: Yes (Death, Hospitalization)
  Sender: FDA-Public Use
  Company Number: PHHY2009MX49254

PATIENT
  Sex: Male

DRUGS (1)
  1. EXFORGE [Suspect]
     Dosage: 1 TABLET (160/10 MG) PER DAY
     Route: 048

REACTIONS (3)
  - PNEUMONIA [None]
  - RESPIRATORY ARREST [None]
  - RESPIRATORY FAILURE [None]
